FAERS Safety Report 6852406-9 (Version None)
Quarter: 2010Q3

REPORT INFORMATION
  Report Type: 
  Country: None (occurrence: None)
  Receive Date: 20100717
  Receipt Date: 20071112
  Transmission Date: 20110219
  Serious: No
  Sender: FDA-Public Use
  Company Number: US-PFIZER INC-2007097048

PATIENT
  Sex: Female
  Weight: 66.2 kg

DRUGS (5)
  1. CHANTIX [Suspect]
     Indication: SMOKING CESSATION THERAPY
     Dates: start: 20071001
  2. ENALAPRIL MALEATE [Concomitant]
     Indication: HYPERTENSION
  3. VERAPAMIL [Concomitant]
     Indication: HYPERTENSION
  4. FOSAMAX [Concomitant]
     Indication: BONE DISORDER
     Dates: start: 20070101
  5. CYANOCOBALAMIN [Concomitant]
     Dates: start: 20070101

REACTIONS (2)
  - NAUSEA [None]
  - VOMITING [None]
